FAERS Safety Report 24629783 (Version 1)
Quarter: 2024Q4

REPORT INFORMATION
  Report Type: Spontaneous
  Country: US (occurrence: US)
  Receive Date: 20241118
  Receipt Date: 20241118
  Transmission Date: 20250114
  Serious: No
  Sender: BRISTOL-MYERS SQUIBB COMPANY
  Company Number: US-MLMSERVICE-20241030-PI243905-00323-1

PATIENT
  Age: 3 Year
  Sex: Female

DRUGS (4)
  1. TRIAMCINOLONE ACETONIDE [Suspect]
     Active Substance: TRIAMCINOLONE ACETONIDE
     Indication: Dermatitis atopic
     Route: 061
  2. CETIRIZINE [Concomitant]
     Active Substance: CETIRIZINE HYDROCHLORIDE
     Indication: Dermatitis atopic
  3. PIMECROLIMUS [Concomitant]
     Active Substance: PIMECROLIMUS
     Indication: Dermatitis atopic
  4. MUPIROCIN [Concomitant]
     Active Substance: MUPIROCIN
     Indication: Dermatitis atopic
     Route: 061

REACTIONS (1)
  - Dermatitis contact [Recovering/Resolving]
